FAERS Safety Report 8196605-5 (Version None)
Quarter: 2012Q1

REPORT INFORMATION
  Report Type: 
  Country: None (occurrence: None)
  Receive Date: 20120309
  Receipt Date: 20120229
  Transmission Date: 20120608
  Serious: Yes (Other)
  Sender: FDA-Public Use
  Company Number: US-BAYER-2011-013030

PATIENT
  Age: 30 Year
  Sex: Female
  Weight: 97.506 kg

DRUGS (1)
  1. YAZ [Suspect]
     Indication: PRODUCT USED FOR UNKNOWN INDICATION
     Dosage: UNK
     Route: 048
     Dates: start: 20090713, end: 20100514

REACTIONS (6)
  - OVARIAN CYST [None]
  - PAIN IN EXTREMITY [None]
  - HYPERTHYROIDISM [None]
  - ALOPECIA [None]
  - OEDEMA PERIPHERAL [None]
  - MALAISE [None]
